FAERS Safety Report 12535964 (Version 1)
Quarter: 2016Q3

REPORT INFORMATION
  Report Type: Spontaneous
  Country: US (occurrence: US)
  Receive Date: 20160707
  Receipt Date: 20160707
  Transmission Date: 20161109
  Serious: No
  Sender: FDA-Public Use
  Company Number: US-ASTRAZENECA-2016SE69947

PATIENT
  Sex: Female

DRUGS (1)
  1. SYMBICORT [Suspect]
     Active Substance: BUDESONIDE\FORMOTEROL FUMARATE DIHYDRATE
     Dosage: 160/4.5 MCG ONE PUFF TWICE A DAY.
     Route: 055

REACTIONS (6)
  - Dyspepsia [Unknown]
  - Off label use [Unknown]
  - Dysgeusia [Unknown]
  - Throat irritation [Unknown]
  - Productive cough [Unknown]
  - Intentional product misuse [Unknown]
